APPROVED DRUG PRODUCT: TERBUTALINE SULFATE
Active Ingredient: TERBUTALINE SULFATE
Strength: 5MG
Dosage Form/Route: TABLET;ORAL
Application: A077152 | Product #002 | TE Code: AB
Applicant: LANNETT CO INC
Approved: Mar 25, 2005 | RLD: No | RS: Yes | Type: RX